FAERS Safety Report 12407844 (Version 4)
Quarter: 2016Q4

REPORT INFORMATION
  Report Type: Spontaneous
  Country: US (occurrence: US)
  Receive Date: 20160526
  Receipt Date: 20161206
  Transmission Date: 20170207
  Serious: Yes (Other)
  Sender: FDA-Public Use
  Company Number: US-BAYER-2016-100980

PATIENT
  Age: 31 Year
  Sex: Female
  Weight: 68.27 kg

DRUGS (7)
  1. MIRENA [Suspect]
     Active Substance: LEVONORGESTREL
     Indication: CONTRACEPTION
     Dosage: 20 MCG/24HR, CONT
     Route: 015
     Dates: start: 20131210, end: 20160504
  2. MIRENA [Suspect]
     Active Substance: LEVONORGESTREL
     Indication: CONTRACEPTION
  3. MIRENA [Suspect]
     Active Substance: LEVONORGESTREL
     Indication: CONTRACEPTION
     Dosage: 20 MCG/24HR, CONT
     Route: 015
     Dates: start: 20160504, end: 20160523
  4. SPIRONOLACTONE. [Concomitant]
     Active Substance: SPIRONOLACTONE
     Dosage: 100 MG, QD
     Route: 048
  5. MIRENA [Suspect]
     Active Substance: LEVONORGESTREL
     Indication: CONTRACEPTION
     Dosage: 20 MCG/24HR, CONT
     Route: 015
     Dates: start: 20160523
  6. SPIRONOLACTONE. [Concomitant]
     Active Substance: SPIRONOLACTONE
     Dosage: UNK
  7. SPIRONOLACTONE. [Concomitant]
     Active Substance: SPIRONOLACTONE
     Dosage: UNK

REACTIONS (18)
  - Device dislocation [None]
  - Abdominal pain lower [Recovered/Resolved]
  - Gait disturbance [None]
  - Vaginal haemorrhage [None]
  - Metrorrhagia [None]
  - Pyrexia [None]
  - Weight increased [None]
  - Dyspareunia [None]
  - Ovarian cyst [Recovered/Resolved]
  - Device expulsion [Recovered/Resolved]
  - Pain [None]
  - Pelvic pain [Not Recovered/Not Resolved]
  - Uterine tenderness [None]
  - Procedural pain [None]
  - Genital haemorrhage [Recovered/Resolved]
  - Nausea [None]
  - Chills [None]
  - Abdominal pain lower [None]

NARRATIVE: CASE EVENT DATE: 20160504
